FAERS Safety Report 8367627-6 (Version None)
Quarter: 2012Q1

REPORT INFORMATION
  Report Type: 
  Country: None (occurrence: None)
  Receive Date: 20120323
  Receipt Date: 20111123
  Transmission Date: 20120608
  Serious: Yes (Hospitalization)
  Sender: FDA-Public Use
  Company Number: 163-21880-11080432

PATIENT
  Age: 65 Year
  Sex: Female
  Weight: 83.9 kg

DRUGS (15)
  1. COUMADIN [Concomitant]
  2. NEXIUM [Concomitant]
  3. SYNTHROID [Concomitant]
  4. SODIUM BICARBONATE IN PLASTIC CONTAINER [Concomitant]
  5. ASPIRIN [Concomitant]
  6. LOVENOX [Concomitant]
  7. REVLIMID [Suspect]
  8. VENTOLIN HF (SALBUTAMOL) [Concomitant]
  9. VESICARE [Concomitant]
  10. CALCIUM CARBONATE [Concomitant]
  11. ZOMETA [Concomitant]
  12. REVLIMID [Suspect]
     Indication: MULTIPLE MYELOMA
     Dosage: 25 MG, DAILY X 3 OF 4 WEEKS, PO
     Route: 048
     Dates: start: 20101227
  13. DEXAMETHASONE [Concomitant]
  14. NORVASC [Concomitant]
  15. SPIRIVA [Concomitant]

REACTIONS (2)
  - DIARRHOEA [None]
  - FATIGUE [None]
